FAERS Safety Report 15478371 (Version 1)
Quarter: 2018Q4

REPORT INFORMATION
  Report Type: Spontaneous
  Country: US (occurrence: US)
  Receive Date: 20181002
  Receipt Date: 20181002
  Transmission Date: 20190205
  Serious: Yes (Disabling, Other)
  Sender: FDA-Public Use
  Company Number: None

PATIENT
  Age: 10 Year
  Sex: Male
  Weight: 46.35 kg

DRUGS (9)
  1. RISPERIDONE. [Concomitant]
     Active Substance: RISPERIDONE
  2. ZYRTEC [Concomitant]
     Active Substance: CETIRIZINE HYDROCHLORIDE
  3. FIBER SUPPLEMENTS [Concomitant]
  4. VISTARIL [Concomitant]
     Active Substance: HYDROXYZINE PAMOATE
  5. MULTIVITAMINS [Concomitant]
     Active Substance: VITAMINS
  6. ZOLOFT [Concomitant]
     Active Substance: SERTRALINE HYDROCHLORIDE
  7. MELATONIN [Concomitant]
     Active Substance: MELATONIN
  8. MIRALAX [Suspect]
     Active Substance: POLYETHYLENE GLYCOL 3350
     Indication: CONSTIPATION
     Dosage: ?          QUANTITY:1 CAPFUL;?
     Route: 048
     Dates: start: 20180929, end: 20180930
  9. CLONIDINE ER [Concomitant]
     Active Substance: CLONIDINE

REACTIONS (7)
  - Depressed mood [None]
  - Fatigue [None]
  - Tourette^s disorder [None]
  - Affect lability [None]
  - Anger [None]
  - Pain [None]
  - Aggression [None]

NARRATIVE: CASE EVENT DATE: 20180929
